FAERS Safety Report 23257079 (Version 1)
Quarter: 2023Q4

REPORT INFORMATION
  Report Type: Spontaneous
  Country: US (occurrence: US)
  Receive Date: 20231204
  Receipt Date: 20231204
  Transmission Date: 20240110
  Serious: No
  Sender: FDA-Public Use
  Company Number: US-JNJFOC-20231148388

PATIENT
  Age: 77 Year
  Sex: Male

DRUGS (1)
  1. MENS ROGAINE EXTRA STRENGTH [Suspect]
     Active Substance: MINOXIDIL
     Indication: Alopecia
     Dosage: 1/2 CAPFUL TWICE A DAY
     Route: 061
     Dates: start: 202311

REACTIONS (2)
  - Alopecia [Not Recovered/Not Resolved]
  - Product administered at inappropriate site [Unknown]
